FAERS Safety Report 13609079 (Version 5)
Quarter: 2017Q3

REPORT INFORMATION
  Report Type: Report from Study
  Country: GR (occurrence: GR)
  Receive Date: 20170602
  Receipt Date: 20170831
  Transmission Date: 20171127
  Serious: Yes (Death, Life-Threatening, Hospitalization, Disabling)
  Sender: FDA-Public Use
  Company Number: GR-JNJFOC-20170601069

PATIENT
  Age: 84 Year
  Sex: Male

DRUGS (7)
  1. CARVEDILEN [Concomitant]
     Indication: HYPERTENSION
     Route: 048
     Dates: start: 20170323
  2. IRBOTENS PLUS [Concomitant]
     Indication: HYPERTENSION
     Route: 048
     Dates: start: 20170411
  3. IBRUTINIB [Suspect]
     Active Substance: IBRUTINIB
     Indication: PLASMA CELL MYELOMA
     Route: 048
     Dates: start: 20170314, end: 20170523
  4. SINTROM [Concomitant]
     Active Substance: ACENOCOUMAROL
     Indication: ATRIAL FIBRILLATION
     Route: 048
     Dates: start: 200803
  5. JANUMET [Concomitant]
     Active Substance: METFORMIN HYDROCHLORIDE\SITAGLIPTIN PHOSPHATE
     Indication: DIABETES MELLITUS
     Route: 048
     Dates: start: 1993
  6. BORTEZOMIB [Suspect]
     Active Substance: BORTEZOMIB
     Indication: PLASMA CELL MYELOMA
     Dosage: 1.3 MG/M2, D1,4,8,11 PER 21 D CYCLE
     Route: 058
     Dates: start: 20170314, end: 20170523
  7. DEXAMETHASONE. [Suspect]
     Active Substance: DEXAMETHASONE
     Indication: PLASMA CELL MYELOMA
     Dosage: 10 MG D1,2,8,9,15,AND 16
     Route: 048
     Dates: start: 20170314, end: 20170523

REACTIONS (1)
  - Cerebral haemorrhage [Fatal]

NARRATIVE: CASE EVENT DATE: 20170523
